FAERS Safety Report 8308074 (Version 2)
Quarter: 2012Q4

REPORT INFORMATION
  Report Type: 
  Country: US (occurrence: US)
  Receive Date: 20111222
  Receipt Date: 20121218
  Transmission Date: 20130627
  Serious: No
  Sender: FDA-Public Use
  Company Number: US-GLAXOSMITHKLINE-A0950221A

PATIENT
  Age: 65 Year
  Sex: Male

DRUGS (2)
  1. NICORETTE [Suspect]
     Indication: EX-TOBACCO USER
     Route: 002
     Dates: start: 20111023
  2. BUPROPION [Concomitant]

REACTIONS (6)
  - Tongue coated [Recovered/Resolved]
  - Medication residue [Recovered/Resolved]
  - Product quality issue [Unknown]
  - Drug administration error [Unknown]
  - Product solubility abnormal [None]
  - Product quality issue [None]
